FAERS Safety Report 8322667 (Version 3)
Quarter: 2015Q2

REPORT INFORMATION
  Report Type: Report from Study
  Country: KE (occurrence: KE)
  Receive Date: 20120105
  Receipt Date: 20150520
  Transmission Date: 20150821
  Serious: Yes (Death, Other)
  Sender: FDA-Public Use
  Company Number: PHHY2011KE114671

PATIENT
  Age: 24 Year
  Sex: Male
  Weight: 67 kg

DRUGS (5)
  1. FLAGYL [Concomitant]
     Active Substance: METRONIDAZOLE\METRONIDAZOLE HYDROCHLORIDE
     Indication: SEPSIS
     Dosage: 500 MG (08 LULY), UNK
     Route: 065
     Dates: start: 20150314, end: 20150321
  2. GLIVEC [Suspect]
     Active Substance: IMATINIB MESYLATE
     Indication: CHRONIC MYELOID LEUKAEMIA
     Dosage: 600 MG, UNK
     Route: 048
     Dates: start: 20090715
  3. ZINACEF [Concomitant]
     Active Substance: CEFUROXIME SODIUM
     Indication: SEPSIS
     Dosage: 01 G, 8 LULY
     Route: 042
     Dates: start: 20150314, end: 20150321
  4. GLIVEC [Suspect]
     Active Substance: IMATINIB MESYLATE
     Dosage: 800 MG, UNK
     Route: 048
  5. FORTUM                                  /UNK/ [Concomitant]
     Indication: SEPSIS
     Dosage: 1 G (08 LULY), UNK
     Route: 042
     Dates: start: 20150327

REACTIONS (6)
  - Blast crisis in myelogenous leukaemia [Fatal]
  - Platelet count decreased [Unknown]
  - Leukaemia [Fatal]
  - White blood cell count increased [Fatal]
  - Treatment failure [Fatal]
  - Anaemia [Fatal]

NARRATIVE: CASE EVENT DATE: 20140715
